FAERS Safety Report 8459497-2 (Version None)
Quarter: 2012Q2

REPORT INFORMATION
  Report Type: 
  Country: None (occurrence: None)
  Receive Date: 20120622
  Receipt Date: 20120618
  Transmission Date: 20120825
  Serious: Yes (Other)
  Sender: FDA-Public Use
  Company Number: JP-ELI_LILLY_AND_COMPANY-JP201206006697

PATIENT
  Age: 83 Year
  Sex: Female

DRUGS (23)
  1. PURSENNID                          /00571902/ [Concomitant]
     Route: 048
  2. MAGMITT [Concomitant]
     Dosage: UNK
     Route: 048
  3. LOXONIN [Concomitant]
     Route: 062
  4. MUCOSTA [Concomitant]
     Route: 048
  5. LASIX [Concomitant]
     Route: 048
  6. KREMEZIN [Concomitant]
     Route: 048
  7. FAMOTIDINE [Concomitant]
     Route: 048
  8. LEVOFLOXACIN [Concomitant]
     Route: 048
  9. CLARITHROMYCIN [Concomitant]
     Route: 048
  10. FORTEO [Suspect]
     Indication: OSTEOPOROSIS
     Dosage: 20 UG, QD
     Route: 058
     Dates: start: 20120525, end: 20120618
  11. POTASSIUM CHLORIDE [Concomitant]
     Dosage: UNK
     Route: 042
  12. LOXOMARIN [Concomitant]
     Route: 048
  13. AMOBAN [Concomitant]
     Route: 048
  14. MERISLON [Concomitant]
     Route: 048
  15. PREDNISOLONE [Concomitant]
     Route: 048
  16. ADOFEED [Concomitant]
     Route: 062
  17. NEOAMIYU [Concomitant]
     Route: 042
  18. ADENOSINE [Concomitant]
     Dosage: UNK
     Route: 048
  19. SODIUM CHLORIDE [Concomitant]
     Route: 042
  20. CEROCRAL [Concomitant]
     Route: 048
  21. VEEN D [Concomitant]
     Route: 042
  22. LASIX [Concomitant]
     Route: 042
  23. PHYSIOSOL 3 [Concomitant]
     Route: 042

REACTIONS (8)
  - TOOTHACHE [None]
  - ANAEMIA [None]
  - BLOOD ALBUMIN DECREASED [None]
  - PLATELET COUNT DECREASED [None]
  - C-REACTIVE PROTEIN INCREASED [None]
  - DECREASED APPETITE [None]
  - APTYALISM [None]
  - ABDOMINAL DISTENSION [None]
